FAERS Safety Report 10197422 (Version 1)
Quarter: 2014Q2

REPORT INFORMATION
  Report Type: Spontaneous
  Country: CO (occurrence: CO)
  Receive Date: 20140527
  Receipt Date: 20140527
  Transmission Date: 20141212
  Serious: Yes (Other)
  Sender: FDA-Public Use
  Company Number: CO-PFIZER INC-2014145004

PATIENT
  Age: 16 Year
  Sex: Male

DRUGS (1)
  1. GENOTROPIN [Suspect]
     Indication: GROWTH RETARDATION
     Dosage: UNK
     Route: 058
     Dates: start: 201008

REACTIONS (2)
  - Hypothyroidism [Not Recovered/Not Resolved]
  - Hyperglycaemia [Not Recovered/Not Resolved]
